FAERS Safety Report 7956979-4 (Version None)
Quarter: 2011Q4

REPORT INFORMATION
  Report Type: 
  Country: None (occurrence: None)
  Receive Date: 20111205
  Receipt Date: 20111205
  Transmission Date: 20120403
  Serious: No
  Sender: FDA-Public Use
  Company Number: None

PATIENT
  Age: 65 Year
  Sex: Male

DRUGS (1)
  1. ALBUMINAR [Suspect]
     Dosage: 3000 ML
     Route: 042
     Dates: start: 20111129, end: 20111129

REACTIONS (1)
  - URTICARIA [None]
